FAERS Safety Report 8272493-3 (Version None)
Quarter: 2012Q2

REPORT INFORMATION
  Report Type: 
  Country: None (occurrence: None)
  Receive Date: 20120410
  Receipt Date: 20120404
  Transmission Date: 20120825
  Serious: No
  Sender: FDA-Public Use
  Company Number: US-PFIZER INC-2012086565

PATIENT
  Sex: Female

DRUGS (1)
  1. SUTENT [Suspect]
     Indication: RENAL CELL CARCINOMA
     Dosage: UNK
     Dates: start: 20090401

REACTIONS (6)
  - RENAL CELL CARCINOMA [None]
  - ALOPECIA [None]
  - NAUSEA [None]
  - DISEASE PROGRESSION [None]
  - PAIN IN EXTREMITY [None]
  - DIARRHOEA [None]
